FAERS Safety Report 6959287-3 (Version None)
Quarter: 2010Q3

REPORT INFORMATION
  Report Type: 
  Country: None (occurrence: None)
  Receive Date: 20100831
  Receipt Date: 20100817
  Transmission Date: 20110219
  Serious: No
  Sender: FDA-Public Use
  Company Number: US-PFIZER INC-2010104267

PATIENT

DRUGS (1)
  1. TRIAZOLAM [Suspect]
     Indication: PREOPERATIVE CARE
     Dosage: 0.25 MG  TWO TABLETS, UNK
     Route: 048

REACTIONS (2)
  - DRUG INEFFECTIVE [None]
  - INCORRECT DOSE ADMINISTERED [None]
